FAERS Safety Report 15662038 (Version 2)
Quarter: 2018Q4

REPORT INFORMATION
  Report Type: Spontaneous
  Country: US (occurrence: US)
  Receive Date: 20181127
  Receipt Date: 20181231
  Transmission Date: 20190205
  Serious: Yes (Other)
  Sender: FDA-Public Use
  Company Number: PHEH2018US049399

PATIENT
  Sex: Female

DRUGS (2)
  1. TRAVATAN [Suspect]
     Active Substance: TRAVOPROST
     Indication: PRODUCT USED FOR UNKNOWN INDICATION
     Route: 047
     Dates: start: 20130801
  2. TRAVATAN [Suspect]
     Active Substance: TRAVOPROST
     Route: 047
     Dates: start: 20180801

REACTIONS (6)
  - Eye pain [Unknown]
  - Eye irritation [Unknown]
  - Blepharospasm [Unknown]
  - Hypersensitivity [Unknown]
  - Glaucoma [Unknown]
  - Product quality issue [Unknown]

NARRATIVE: CASE EVENT DATE: 20180801
